FAERS Safety Report 7057062-5 (Version None)
Quarter: 2010Q4

REPORT INFORMATION
  Report Type: 
  Country: None (occurrence: None)
  Receive Date: 20101022
  Receipt Date: 20101006
  Transmission Date: 20110411
  Serious: Yes (Hospitalization)
  Sender: FDA-Public Use
  Company Number: US-BAYER-201034854NA

PATIENT
  Age: 27 Year
  Sex: Female
  Weight: 84 kg

DRUGS (10)
  1. YAZ [Suspect]
     Indication: CONTRACEPTION
     Route: 048
     Dates: start: 20080101, end: 20090101
  2. YASMIN [Suspect]
     Indication: PRODUCT USED FOR UNKNOWN INDICATION
     Route: 048
  3. DROSPIRENONE AND ETHINYL ESTRADIOL [Suspect]
     Indication: PRODUCT USED FOR UNKNOWN INDICATION
     Route: 048
  4. LAMISIL [Concomitant]
     Indication: PRODUCT USED FOR UNKNOWN INDICATION
     Route: 065
  5. LOESTRIN 24 FE [Concomitant]
     Dosage: 130JUL-2009
     Route: 065
  6. TERBINAFINE HCL [Concomitant]
     Route: 065
     Dates: start: 20091118, end: 20100615
  7. BUTABITAL/APAP/CAFFEINE/CODEONE [Concomitant]
     Dosage: 14-OCT-2009
     Route: 065
  8. LORATADINE [Concomitant]
     Dosage: 14-OCT-2009
     Route: 065
  9. DICLOFENAC SODIUM [Concomitant]
     Dosage: 05-JUL-2009
     Route: 065
  10. NAPROXEN SODIUM [Concomitant]
     Dosage: 27-FEB-2008
     Route: 065

REACTIONS (6)
  - ABDOMINAL PAIN UPPER [None]
  - CHOLECYSTITIS CHRONIC [None]
  - CHOLELITHIASIS [None]
  - GALLBLADDER CHOLESTEROLOSIS [None]
  - INJURY [None]
  - VOMITING [None]
